FAERS Safety Report 12321404 (Version 3)
Quarter: 2016Q2

REPORT INFORMATION
  Report Type: Spontaneous
  Country: JP (occurrence: JP)
  Receive Date: 20160502
  Receipt Date: 20160614
  Transmission Date: 20160815
  Serious: Yes (Other)
  Sender: FDA-Public Use
  Company Number: JP-HORIZON-BUP-0054-2016

PATIENT
  Age: 1 Month
  Sex: Female
  Weight: 3.1 kg

DRUGS (6)
  1. VICCILLIN-S [Concomitant]
     Indication: CARBAMOYL PHOSPHATE SYNTHETASE DEFICIENCY
     Route: 042
     Dates: start: 20160419
  2. BUPHENYL [Suspect]
     Active Substance: SODIUM PHENYLBUTYRATE
     Indication: CARBAMOYL PHOSPHATE SYNTHETASE DEFICIENCY
     Dosage: 200 MG DAILY
     Route: 048
     Dates: start: 20160421
  3. L-CARTIN FF [Concomitant]
     Active Substance: LEVOCARNITINE
     Indication: CARBAMOYL PHOSPHATE SYNTHETASE DEFICIENCY
     Route: 048
     Dates: start: 20160420
  4. CLAFORAN [Concomitant]
     Active Substance: CEFOTAXIME SODIUM
     Indication: CARBAMOYL PHOSPHATE SYNTHETASE DEFICIENCY
     Route: 042
     Dates: start: 20160419
  5. ARGININE [Concomitant]
     Active Substance: ARGININE
     Indication: CARBAMOYL PHOSPHATE SYNTHETASE DEFICIENCY
     Route: 042
     Dates: start: 20160420
  6. SODIUM BENZOATE [Concomitant]
     Active Substance: SODIUM BENZOATE
     Indication: CARBAMOYL PHOSPHATE SYNTHETASE DEFICIENCY
     Route: 048
     Dates: start: 20160420

REACTIONS (1)
  - Rhabdomyolysis [Recovered/Resolved]

NARRATIVE: CASE EVENT DATE: 20160423
